FAERS Safety Report 24773054 (Version 1)
Quarter: 2024Q4

REPORT INFORMATION
  Report Type: Report from Study
  Country: CN (occurrence: CN)
  Receive Date: 20241225
  Receipt Date: 20241225
  Transmission Date: 20250115
  Serious: Yes (Other)
  Sender: ROCHE
  Company Number: CN-ROCHE-10000164636

PATIENT

DRUGS (10)
  1. TRASTUZUMAB [Suspect]
     Active Substance: TRASTUZUMAB
     Indication: HER2 positive breast cancer
     Dosage: FOLLOWED BY 6 MG/KG, ON DAY 1; ADMINISTERED EVERY 21 DAYS.
     Route: 065
  2. PERTUZUMAB [Suspect]
     Active Substance: PERTUZUMAB
     Indication: HER2 positive breast cancer
     Dosage: FOLLOWED BY 420 MG, ON DAY 1. ADMINISTERED EVERY 21 DAYS.
     Route: 065
  3. DOCETAXEL [Suspect]
     Active Substance: DOCETAXEL
     Indication: HER2 positive breast cancer
     Dosage: 80 TO 100 MG/M2 ON DAY 1, ADMINISTERED EVERY 21 DAYS
     Route: 065
  4. DOCETAXEL [Suspect]
     Active Substance: DOCETAXEL
     Dosage: ON DAY 1. ADMINISTERED EVERY 21 DAYS
     Route: 065
  5. DOCETAXEL [Suspect]
     Active Substance: DOCETAXEL
     Dosage: DAY 1 EVERY 21 DAYS FOR 4 CYCLES
     Route: 065
  6. PACLITAXEL [Suspect]
     Active Substance: PACLITAXEL
     Indication: HER2 positive breast cancer
     Dosage: ON DAYS 1 AND 8, ADMINISTERED EVERY 21 DAYS
     Route: 065
  7. CARBOPLATIN [Suspect]
     Active Substance: CARBOPLATIN
     Indication: HER2 positive breast cancer
     Dosage: AUC AREA UNDER THE CURVE WAS 6 MG/ML/MIN ON DAY 1. ADMINISTERED EVERY 21 DAYS
     Route: 065
  8. EPIRUBICIN [Suspect]
     Active Substance: EPIRUBICIN
     Indication: HER2 positive breast cancer
     Dosage: 90 TO 100 MG/M2, DOSES WERE ADMINISTERED EVERY 21 DAYS FOR 4 CYCLES.
     Route: 065
  9. PIRARUBICIN [Suspect]
     Active Substance: PIRARUBICIN
     Indication: HER2 positive breast cancer
     Dosage: ON DAY 1, DOSES WERE ADMINISTERED EVERY 21 DAYS FOR 4 CYCLES.
     Route: 065
  10. CYCLOPHOSPHAMIDE [Suspect]
     Active Substance: CYCLOPHOSPHAMIDE
     Indication: HER2 positive breast cancer
     Dosage: ON DAY 1 , DOSES WERE ADMINISTERED EVERY 21 DAYS FOR 4 CYCLES.
     Route: 065

REACTIONS (5)
  - Agranulocytosis [Unknown]
  - Ejection fraction decreased [Unknown]
  - Hypoaesthesia [Unknown]
  - Pain in extremity [Unknown]
  - Herpes virus infection [Unknown]
